FAERS Safety Report 5408817-1 (Version None)
Quarter: 2007Q3

REPORT INFORMATION
  Report Type: 
  Country: None (occurrence: None)
  Receive Date: 20070808
  Receipt Date: 20070807
  Transmission Date: 20080115
  Serious: Yes (Other)
  Sender: FDA-Public Use
  Company Number: A0668283A

PATIENT
  Age: 51 Year
  Sex: Female

DRUGS (2)
  1. ALLI [Suspect]
     Route: 048
     Dates: start: 20070730, end: 20070806
  2. BIRTH CONTROL [Concomitant]

REACTIONS (3)
  - METRORRHAGIA [None]
  - MUSCLE SPASMS [None]
  - VAGINAL HAEMORRHAGE [None]
